FAERS Safety Report 8345843-7 (Version None)
Quarter: 2012Q2

REPORT INFORMATION
  Report Type: 
  Country: None (occurrence: None)
  Receive Date: 20120509
  Receipt Date: 20120430
  Transmission Date: 20120825
  Serious: Yes (Hospitalization, Other)
  Sender: FDA-Public Use
  Company Number: US-BIOGENIDEC-2012BI001729

PATIENT
  Sex: Female

DRUGS (6)
  1. REQUIP [Concomitant]
  2. CYMBALTA [Concomitant]
  3. XANAX [Concomitant]
  4. AMBIEN [Concomitant]
  5. ASPIRIN [Concomitant]
  6. AVONEX [Suspect]
     Indication: MULTIPLE SCLEROSIS
     Route: 030
     Dates: start: 20101213

REACTIONS (21)
  - ANURIA [None]
  - INFLUENZA LIKE ILLNESS [None]
  - OEDEMA [None]
  - PNEUMONIA KLEBSIELLA [None]
  - VOMITING [None]
  - CONSTIPATION [None]
  - AORTIC CALCIFICATION [None]
  - HELICOBACTER INFECTION [None]
  - DIVERTICULUM [None]
  - UMBILICAL HERNIA [None]
  - URINARY TRACT INFECTION [None]
  - DIABETES MELLITUS [None]
  - ANGINA PECTORIS [None]
  - CYSTITIS [None]
  - BLADDER DYSFUNCTION [None]
  - CONVULSION [None]
  - CHEST PAIN [None]
  - FLUID RETENTION [None]
  - ABDOMINAL DISTENSION [None]
  - MITRAL VALVE PROLAPSE [None]
  - NAUSEA [None]
